FAERS Safety Report 6238787-8 (Version None)
Quarter: 2009Q2

REPORT INFORMATION
  Report Type: 
  Country: None (occurrence: None)
  Receive Date: 20090622
  Receipt Date: 20090617
  Transmission Date: 20091009
  Serious: Yes (Death)
  Sender: FDA-Public Use
  Company Number: DE-WATSON-2009-04563

PATIENT
  Age: 19 Year
  Sex: Male

DRUGS (3)
  1. ETOPOSIDE [Suspect]
     Indication: TESTIS CANCER
     Dosage: UNK
     Dates: start: 20080401
  2. CISPLATIN [Suspect]
     Indication: TESTIS CANCER
     Dosage: UNK
     Dates: start: 20080401
  3. IFOSFAMIDE [Suspect]
     Dosage: UNK
     Dates: start: 20080401

REACTIONS (1)
  - ACUTE RESPIRATORY DISTRESS SYNDROME [None]
